FAERS Safety Report 10615783 (Version 1)
Quarter: 2014Q4

REPORT INFORMATION
  Report Type: Spontaneous
  Country: US (occurrence: None)
  Receive Date: 20141125
  Receipt Date: 20141125
  Transmission Date: 20150529
  Serious: No
  Sender: FDA-Public Use
  Company Number: None

PATIENT
  Age: 62 Year
  Sex: Female

DRUGS (1)
  1. SODIUM SULFACETAMIDE AND SULFUR [Suspect]
     Active Substance: SULFACETAMIDE\SULFACETAMIDE SODIUM\SULFUR
     Indication: ACNE
     Dosage: 6-OZ TUBE (170 G)  TWICE DAILY
     Dates: start: 20141117, end: 20141119

REACTIONS (6)
  - Pallor [None]
  - Urticaria [None]
  - Product substitution issue [None]
  - Product quality issue [None]
  - Skin disorder [None]
  - Dry skin [None]

NARRATIVE: CASE EVENT DATE: 20141119
